FAERS Safety Report 5902068-X (Version None)
Quarter: 2008Q3

REPORT INFORMATION
  Report Type: 
  Country: None (occurrence: None)
  Receive Date: 20080929
  Receipt Date: 20080917
  Transmission Date: 20090109
  Serious: Yes (Other)
  Sender: FDA-Public Use
  Company Number: US-PFIZER INC-2008063332

PATIENT
  Sex: Female
  Weight: 72.3 kg

DRUGS (2)
  1. CHANTIX [Suspect]
     Indication: SMOKING CESSATION THERAPY
     Dates: start: 20080703
  2. PREMARIN [Concomitant]
     Dosage: FREQ:DAILY

REACTIONS (1)
  - LUNG ABSCESS [None]
